FAERS Safety Report 24964359 (Version 4)
Quarter: 2025Q2

REPORT INFORMATION
  Report Type: Spontaneous
  Country: JP (occurrence: JP)
  Receive Date: 20250213
  Receipt Date: 20250526
  Transmission Date: 20250717
  Serious: Yes (Other)
  Sender: BRISTOL-MYERS SQUIBB COMPANY
  Company Number: JP-ONO-2025JP002123

PATIENT
  Age: 66 Year
  Sex: Female
  Weight: 52.1 kg

DRUGS (8)
  1. YERVOY [Suspect]
     Active Substance: IPILIMUMAB
     Indication: Metastatic renal cell carcinoma
     Route: 041
     Dates: start: 20201209, end: 20201209
  2. YERVOY [Suspect]
     Active Substance: IPILIMUMAB
     Route: 041
     Dates: start: 20201230, end: 20201230
  3. YERVOY [Suspect]
     Active Substance: IPILIMUMAB
     Route: 041
     Dates: start: 20210120, end: 20210120
  4. YERVOY [Suspect]
     Active Substance: IPILIMUMAB
     Route: 041
     Dates: start: 20210210, end: 20210210
  5. OPDIVO [Suspect]
     Active Substance: NIVOLUMAB
     Indication: Metastatic renal cell carcinoma
     Route: 041
     Dates: start: 20201209, end: 20201209
  6. OPDIVO [Suspect]
     Active Substance: NIVOLUMAB
     Route: 041
     Dates: start: 20201230, end: 20201230
  7. OPDIVO [Suspect]
     Active Substance: NIVOLUMAB
     Route: 041
     Dates: start: 20210120, end: 20210120
  8. OPDIVO [Suspect]
     Active Substance: NIVOLUMAB
     Route: 041
     Dates: start: 20210210, end: 20210210

REACTIONS (3)
  - Off label use [Unknown]
  - Immune-mediated hepatic disorder [Recovering/Resolving]
  - Pelvic venous thrombosis [Recovering/Resolving]

NARRATIVE: CASE EVENT DATE: 20201209
